FAERS Safety Report 8101739-7 (Version None)
Quarter: 2012Q1

REPORT INFORMATION
  Report Type: 
  Country: None (occurrence: None)
  Receive Date: 20120131
  Receipt Date: 20120123
  Transmission Date: 20120608
  Serious: Yes (Other)
  Sender: FDA-Public Use
  Company Number: PHHY2012CA003843

PATIENT
  Sex: Female

DRUGS (1)
  1. DIOVAN HCT [Suspect]
     Dosage: (80/12.5 MG), UNK

REACTIONS (5)
  - BLOOD PRESSURE DECREASED [None]
  - DRUG INEFFECTIVE [None]
  - HYPOKINESIA [None]
  - DIZZINESS [None]
  - LOSS OF CONSCIOUSNESS [None]
